FAERS Safety Report 5473490-3 (Version None)
Quarter: 2007Q4

REPORT INFORMATION
  Report Type: 
  Country: None (occurrence: None)
  Receive Date: 20071001
  Receipt Date: 20070918
  Transmission Date: 20080405
  Serious: Yes (Death, Hospitalization)
  Sender: FDA-Public Use
  Company Number: FR-GENENTECH-247973

PATIENT
  Age: 56 Year
  Sex: Female

DRUGS (2)
  1. AVASTIN [Suspect]
     Indication: BREAST CANCER
     Dosage: UNK, DAYS 1+15
     Dates: start: 20070710
  2. TAXOL [Concomitant]
     Indication: BREAST CANCER
     Dates: start: 20070710

REACTIONS (3)
  - CARDIAC ARREST [None]
  - DEATH [None]
  - INTESTINAL PERFORATION [None]
